FAERS Safety Report 8385344 (Version 2)
Quarter: 2015Q1

REPORT INFORMATION
  Report Type: Report from Study
  Country: US (occurrence: US)
  Receive Date: 20120202
  Receipt Date: 20150303
  Transmission Date: 20150721
  Serious: Yes (Death, Hospitalization)
  Sender: FDA-Public Use
  Company Number: US-ROCHE-1035708

PATIENT
  Age: 42 Year
  Sex: Male
  Weight: 85.6 kg

DRUGS (15)
  1. PAXIL (UNITED STATES) [Concomitant]
     Route: 065
  2. KEPPRA [Concomitant]
     Active Substance: LEVETIRACETAM
     Dosage: 1000 MG EVERY MORNING 1500 MG EVERY NIGHT
     Route: 048
  3. AVASTIN [Suspect]
     Active Substance: BEVACIZUMAB
     Indication: BRAIN NEOPLASM
     Route: 042
     Dates: start: 20070223
  4. PERCOCET [Concomitant]
     Active Substance: ACETAMINOPHEN\OXYCODONE HYDROCHLORIDE
     Indication: PROCTALGIA
  5. ZOFRAN [Concomitant]
     Active Substance: ONDANSETRON HYDROCHLORIDE
     Dosage: AS NEEDED
     Route: 048
  6. IRINOTECAN HYDROCHLORIDE. [Concomitant]
     Active Substance: IRINOTECAN HYDROCHLORIDE
     Route: 042
     Dates: start: 20070223
  7. SEROQUEL [Concomitant]
     Active Substance: QUETIAPINE FUMARATE
     Dosage: EVERY NIGHT AT BEDTIME
     Route: 065
  8. DEPAKOTE ER [Concomitant]
     Active Substance: DIVALPROEX SODIUM
     Dosage: EVERY NIGHT
     Route: 065
  9. VITAMIN D2 [Concomitant]
     Active Substance: ERGOCALCIFEROL
     Dosage: 2 TABS
     Route: 048
  10. AVASTIN [Suspect]
     Active Substance: BEVACIZUMAB
     Route: 042
     Dates: start: 20070223
  11. DECADRON [Concomitant]
     Active Substance: DEXAMETHASONE
  12. ATROPINE SULFATE. [Concomitant]
     Active Substance: ATROPINE SULFATE
     Route: 065
     Dates: start: 20070309
  13. KLONOPIN [Concomitant]
     Active Substance: CLONAZEPAM
     Route: 048
  14. DEXAMETHASONE SODIUM PHOSPHATE. [Concomitant]
     Active Substance: DEXAMETHASONE SODIUM PHOSPHATE
     Route: 042
     Dates: start: 20070223
  15. ONDANSETRON HYDROCHLORIDE. [Concomitant]
     Active Substance: ONDANSETRON HYDROCHLORIDE
     Route: 042
     Dates: start: 20070223

REACTIONS (14)
  - Visual acuity reduced [Unknown]
  - Brain neoplasm [Unknown]
  - Off label use [Unknown]
  - Pneumonia [Unknown]
  - Hypoaesthesia [Unknown]
  - Cognitive disorder [Unknown]
  - Muscular weakness [Unknown]
  - Paraesthesia [Unknown]
  - Myopathy [Unknown]
  - Fatigue [Unknown]
  - Rectal fissure [Unknown]
  - Death [Fatal]
  - Speech disorder [Unknown]
  - Ataxia [Unknown]

NARRATIVE: CASE EVENT DATE: 20070831
